FAERS Safety Report 5925214-0 (Version None)
Quarter: 2008Q4

REPORT INFORMATION
  Report Type: 
  Country: None (occurrence: None)
  Receive Date: 20081020
  Receipt Date: 20081020
  Transmission Date: 20090506
  Serious: Yes (Hospitalization)
  Sender: FDA-Public Use
  Company Number: None

PATIENT
  Age: 62 Year
  Sex: Male

DRUGS (2)
  1. WARFARIN SODIUM [Suspect]
     Indication: AORTIC OCCLUSION
     Dosage: 7.5 MG EVERY DAY PO
     Route: 048
     Dates: start: 20080913, end: 20081011
  2. WARFARIN SODIUM [Suspect]
     Indication: PULMONARY EMBOLISM
     Dosage: 7.5 MG EVERY DAY PO
     Route: 048
     Dates: start: 20080913, end: 20081011

REACTIONS (3)
  - DRUG TOXICITY [None]
  - PAIN IN EXTREMITY [None]
  - RECTAL HAEMORRHAGE [None]
